FAERS Safety Report 10431448 (Version 2)
Quarter: 2015Q1

REPORT INFORMATION
  Report Type: Report from Study
  Country: KR (occurrence: KR)
  Receive Date: 20140904
  Receipt Date: 20150112
  Transmission Date: 20150720
  Serious: Yes (Hospitalization, Other)
  Sender: FDA-Public Use
  Company Number: KR-GLAXOSMITHKLINE-B1029451A

PATIENT
  Age: 75 Year
  Sex: Male
  Weight: 67 kg

DRUGS (18)
  1. ISOSORBID DINITRATE [Concomitant]
     Indication: ANGINA PECTORIS
     Route: 048
     Dates: start: 20140304
  2. SIGMART [Concomitant]
     Active Substance: NICORANDIL
     Indication: ANGINA PECTORIS
     Route: 048
     Dates: start: 20140123
  3. CLARYTINE [Concomitant]
     Indication: RASH
  4. JURNISTA [Concomitant]
     Active Substance: HYDROMORPHONE HYDROCHLORIDE
     Indication: PAIN
  5. MUTERAN [Concomitant]
     Indication: COUGH
  6. TOPOTECAN HYDROCHLORIDE. [Suspect]
     Active Substance: TOPOTECAN HYDROCHLORIDE
     Indication: SMALL CELL LUNG CANCER
     Route: 048
     Dates: start: 20140717
  7. CODEINE [Concomitant]
     Active Substance: CODEINE
     Indication: COUGH
     Route: 048
     Dates: start: 20140409
  8. DIFLUCAN [Concomitant]
     Active Substance: FLUCONAZOLE
     Indication: PROPHYLAXIS
  9. TINSET [Concomitant]
     Active Substance: OXATOMIDE
     Indication: RASH
  10. MAGMIL [Concomitant]
     Active Substance: MAGNESIUM HYDROXIDE
     Indication: CONSTIPATION
     Route: 048
     Dates: start: 20140414
  11. SOLONDO [Concomitant]
     Active Substance: PREDNISOLONE
     Indication: RASH
  12. LEVOTUSS [Concomitant]
     Active Substance: LEVODROPROPIZINE
     Indication: COUGH
  13. CHLORPHENAMINE MALEATE [Concomitant]
     Active Substance: CHLORPHENIRAMINE MALEATE
  14. STILLEN [Concomitant]
     Indication: PROPHYLAXIS
     Route: 048
     Dates: start: 20140408
  15. AZEPTIN [Concomitant]
     Indication: RASH
  16. MEGACE [Concomitant]
     Active Substance: MEGESTROL ACETATE
     Indication: CACHEXIA
     Route: 048
     Dates: start: 20140418
  17. NESP [Concomitant]
     Active Substance: DARBEPOETIN ALFA
     Indication: ANAEMIA
  18. ERDOS [Concomitant]
     Indication: COUGH

REACTIONS (2)
  - Pneumonia [Recovered/Resolved]
  - Febrile neutropenia [Recovered/Resolved]

NARRATIVE: CASE EVENT DATE: 20140728
